FAERS Safety Report 12688169 (Version 4)
Quarter: 2016Q4

REPORT INFORMATION
  Report Type: Report from Study
  Country: US (occurrence: US)
  Receive Date: 20160826
  Receipt Date: 20161021
  Transmission Date: 20170207
  Serious: Yes (Life-Threatening, Hospitalization, Other)
  Sender: FDA-Public Use
  Company Number: US-GILEAD-2016-0226624

PATIENT
  Age: 12 Year
  Sex: Female
  Weight: 46 kg

DRUGS (34)
  1. FENTANYL. [Concomitant]
     Active Substance: FENTANYL
  2. FUROSEMIDE. [Concomitant]
     Active Substance: FUROSEMIDE
  3. AMBRISENTAN [Suspect]
     Active Substance: AMBRISENTAN
     Indication: PULMONARY HYPERTENSION
  4. FERRIPROX [Concomitant]
     Active Substance: DEFERIPRONE
  5. MILRINONE [Concomitant]
     Active Substance: MILRINONE
  6. SPIRONOLACTONE. [Concomitant]
     Active Substance: SPIRONOLACTONE
  7. GABAPENTIN. [Concomitant]
     Active Substance: GABAPENTIN
  8. HYDROCHLOROTHIAZIDE. [Concomitant]
     Active Substance: HYDROCHLOROTHIAZIDE
  9. MAGNESIUM OXIDE. [Concomitant]
     Active Substance: MAGNESIUM OXIDE
  10. MIRALAX [Concomitant]
     Active Substance: POLYETHYLENE GLYCOL 3350
  11. ZANTAC [Concomitant]
     Active Substance: RANITIDINE HYDROCHLORIDE
  12. AMIODARONE [Concomitant]
     Active Substance: AMIODARONE
  13. EPOPROSTENOL. [Concomitant]
     Active Substance: EPOPROSTENOL
  14. HYDROCORTISONE. [Concomitant]
     Active Substance: HYDROCORTISONE
  15. XOPENEX [Concomitant]
     Active Substance: LEVALBUTEROL HYDROCHLORIDE
  16. AMBRISENTAN [Suspect]
     Active Substance: AMBRISENTAN
     Indication: PULMONARY HYPERTENSION
     Dosage: 5 MG, QD
     Route: 048
     Dates: start: 20120806
  17. COLACE [Concomitant]
     Active Substance: DOCUSATE SODIUM
  18. SALINE                             /00075401/ [Concomitant]
     Active Substance: SODIUM CHLORIDE
  19. SILDENAFIL. [Concomitant]
     Active Substance: SILDENAFIL
  20. AMBRISENTAN [Suspect]
     Active Substance: AMBRISENTAN
     Indication: SICKLE CELL ANAEMIA
  21. ACETAMINOPHEN. [Concomitant]
     Active Substance: ACETAMINOPHEN
  22. ADVAIR HFA [Concomitant]
     Active Substance: FLUTICASONE PROPIONATE\SALMETEROL XINAFOATE
  23. HEPARIN FLUSH [Concomitant]
     Active Substance: HEPARIN SODIUM
  24. OXYCODONE [Concomitant]
     Active Substance: OXYCODONE
  25. WARFARIN [Concomitant]
     Active Substance: WARFARIN
  26. CYPROHEPTADINE. [Concomitant]
     Active Substance: CYPROHEPTADINE
  27. DIGOXIN. [Concomitant]
     Active Substance: DIGOXIN
  28. EUCERIN                            /00021201/ [Concomitant]
     Active Substance: SALICYLIC ACID
  29. HYDROXYUREA. [Concomitant]
     Active Substance: HYDROXYUREA
  30. FLOLAN [Concomitant]
     Active Substance: EPOPROSTENOL SODIUM
  31. ADCIRCA [Concomitant]
     Active Substance: TADALAFIL
  32. DIPHENHYDRAMINE. [Concomitant]
     Active Substance: DIPHENHYDRAMINE
  33. ZINC GLUCONATE [Concomitant]
     Active Substance: ZINC GLUCONATE
  34. ZOFRAN [Concomitant]
     Active Substance: ONDANSETRON HYDROCHLORIDE

REACTIONS (7)
  - Skin disorder [Recovered/Resolved]
  - Skin haemorrhage [Not Recovered/Not Resolved]
  - Impaired healing [Recovered/Resolved]
  - Device related infection [Recovering/Resolving]
  - Sepsis [Not Recovered/Not Resolved]
  - Injection site reaction [Not Recovered/Not Resolved]
  - Off label use [Not Recovered/Not Resolved]

NARRATIVE: CASE EVENT DATE: 20120806
